FAERS Safety Report 17224946 (Version 1)
Quarter: 2019Q4

REPORT INFORMATION
  Report Type: Spontaneous
  Country: US (occurrence: US)
  Receive Date: 20191209
  Receipt Date: 20191209
  Transmission Date: 20200122
  Serious: Yes (Hospitalization)
  Sender: FDA-Public Use
  Company Number: None

PATIENT
  Sex: Female

DRUGS (19)
  1. DILTIAZEM. [Suspect]
     Active Substance: DILTIAZEM
  2. ENOXAPARIN [Concomitant]
     Active Substance: ENOXAPARIN
  3. ESOMEPRA MAG [Concomitant]
  4. METHYLPRED [Concomitant]
     Active Substance: METHYLPREDNISOLONE
  5. REPATHA [Suspect]
     Active Substance: EVOLOCUMAB
     Indication: TYPE IIA HYPERLIPIDAEMIA
     Route: 058
     Dates: start: 20190813
  6. GABAPENTIN. [Concomitant]
     Active Substance: GABAPENTIN
  7. LIVALO [Concomitant]
     Active Substance: PITAVASTATIN CALCIUM
  8. COLLAGENASE SANTYL [Concomitant]
     Active Substance: COLLAGENASE CLOSTRIDIUM HISTOLYTICUM
  9. WARFARIN [Concomitant]
     Active Substance: WARFARIN
  10. DULOXETINE. [Concomitant]
     Active Substance: DULOXETINE
  11. DILT-XR [Concomitant]
     Active Substance: DILTIAZEM
  12. POT CL MICRO [Concomitant]
  13. SERTRALINE [Concomitant]
     Active Substance: SERTRALINE HYDROCHLORIDE
  14. HYDROCO [Concomitant]
  15. MUPRIOCIN OIN [Concomitant]
  16. TYLENOL [Concomitant]
     Active Substance: ACETAMINOPHEN
  17. LEVOTHYROXIN [Concomitant]
     Active Substance: LEVOTHYROXINE
  18. METHANAM HIP [Concomitant]
  19. TORSEMIDE. [Concomitant]
     Active Substance: TORSEMIDE

REACTIONS (2)
  - Therapy cessation [None]
  - Ill-defined disorder [None]
